FAERS Safety Report 8496187-4 (Version None)
Quarter: 2012Q3

REPORT INFORMATION
  Report Type: 
  Country: None (occurrence: None)
  Receive Date: 20120709
  Receipt Date: 20120704
  Transmission Date: 20120928
  Serious: Yes (Life-Threatening, Hospitalization)
  Sender: FDA-Public Use
  Company Number: PHHO2012DE009669

PATIENT
  Sex: Female
  Weight: 79.7 kg

DRUGS (7)
  1. ESCITALOPRAM [Suspect]
  2. RISPERIDONE [Suspect]
  3. PLACEBO [Suspect]
     Indication: RELAPSING-REMITTING MULTIPLE SCLEROSIS
     Dosage: CODE NOT BROKEN
     Route: 048
     Dates: start: 20120418
  4. BLINDED NO TREATMENT RECEIVED [Suspect]
     Indication: RELAPSING-REMITTING MULTIPLE SCLEROSIS
     Dosage: CODE NOT BROKEN
     Route: 048
     Dates: start: 20120418
  5. BLINDED FTY 720 [Suspect]
     Indication: RELAPSING-REMITTING MULTIPLE SCLEROSIS
     Dosage: CODE NOT BROKEN
     Route: 048
     Dates: start: 20120418
  6. TYSABRI [Suspect]
     Indication: MULTIPLE SCLEROSIS
     Dosage: UNK
     Dates: start: 20061201, end: 20120222
  7. OPIPRAMOL [Suspect]

REACTIONS (3)
  - PERSONALITY CHANGE [None]
  - PROGRESSIVE MULTIFOCAL LEUKOENCEPHALOPATHY [None]
  - MENTAL DISORDER DUE TO A GENERAL MEDICAL CONDITION [None]
